FAERS Safety Report 8076012-6 (Version None)
Quarter: 2012Q1

REPORT INFORMATION
  Report Type: 
  Country: None (occurrence: None)
  Receive Date: 20120117
  Receipt Date: 20120110
  Transmission Date: 20120608
  Serious: Yes (Death)
  Sender: FDA-Public Use
  Company Number: 1000027247

PATIENT
  Age: 27 Year
  Sex: Female

DRUGS (2)
  1. ARIPIPRAZOLE [Suspect]
     Dosage: ORAL
     Route: 048
  2. CITALOPRAM HYDROBROMIDE [Suspect]
     Dosage: ORAL
     Route: 048

REACTIONS (2)
  - RESPIRATORY ARREST [None]
  - COMPLETED SUICIDE [None]
